FAERS Safety Report 15557468 (Version 1)
Quarter: 2018Q4

REPORT INFORMATION
  Report Type: Report from Study
  Country: None (occurrence: ES)
  Receive Date: 20181026
  Receipt Date: 20181026
  Transmission Date: 20190205
  Serious: Yes (Hospitalization)
  Sender: FDA-Public Use
  Company Number: ES-ABBVIE-18S-144-2526146-00

PATIENT
  Age: 73 Year
  Sex: Male

DRUGS (1)
  1. DUODOPA [Suspect]
     Active Substance: CARBIDOPA\LEVODOPA
     Indication: PARKINSON^S DISEASE
     Route: 050
     Dates: start: 20170216

REACTIONS (7)
  - Gastrointestinal stoma complication [Recovered/Resolved]
  - Anal incontinence [Recovered/Resolved]
  - Saliva discolouration [Recovered/Resolved]
  - Dysuria [Not Recovered/Not Resolved]
  - Impaired gastric emptying [Recovered/Resolved]
  - Discoloured vomit [Recovered/Resolved]
  - Constipation [Recovered/Resolved]

NARRATIVE: CASE EVENT DATE: 2018
